FAERS Safety Report 22096330 (Version 2)
Quarter: 2023Q1

REPORT INFORMATION
  Report Type: Report from Study
  Country: AU (occurrence: AU)
  Receive Date: 20230315
  Receipt Date: 20230331
  Transmission Date: 20230418
  Serious: Yes (Other)
  Sender: FDA-Public Use
  Company Number: AU-JNJFOC-20230316830

PATIENT
  Age: 40 Year
  Sex: Male

DRUGS (1)
  1. REMICADE [Suspect]
     Active Substance: INFLIXIMAB
     Indication: Crohn^s disease
     Dosage: 1X100MG VIAL
     Route: 041

REACTIONS (3)
  - Neoplasm malignant [Recovering/Resolving]
  - Crohn^s disease [Unknown]
  - Therapeutic product effect decreased [Unknown]
